FAERS Safety Report 9349923 (Version 1)
Quarter: 2013Q2

REPORT INFORMATION
  Report Type: Spontaneous
  Country: ES (occurrence: ES)
  Receive Date: 20130614
  Receipt Date: 20130614
  Transmission Date: 20140414
  Serious: Yes (Death, Hospitalization)
  Sender: FDA-Public Use
  Company Number: PHHY2013ES060142

PATIENT
  Age: 49 Year
  Sex: Female

DRUGS (2)
  1. COLCHICINE [Suspect]
     Dosage: 20 MG, UNK
  2. SIMVASTATIN [Suspect]
     Dosage: 120 MG, UNK

REACTIONS (10)
  - Cardiac arrest [Fatal]
  - Cyanosis [Unknown]
  - Prothrombin time prolonged [Unknown]
  - Aspartate aminotransferase increased [Unknown]
  - Diarrhoea [Unknown]
  - Blood creatinine increased [Unknown]
  - Blood creatine phosphokinase increased [Unknown]
  - Blood pressure systolic decreased [Unknown]
  - Toxicity to various agents [Unknown]
  - Drug interaction [Unknown]
